FAERS Safety Report 8299995 (Version 4)
Quarter: 2013Q1

REPORT INFORMATION
  Report Type: Spontaneous
  Country: US (occurrence: US)
  Receive Date: 20111219
  Receipt Date: 20130114
  Transmission Date: 20140127
  Serious: Yes (Other)
  Sender: FDA-Public Use
  Company Number: US-ASTRAZENECA-2011SE57958

PATIENT
  Age: 61 Year
  Sex: Female

DRUGS (1)
  1. CRESTOR [Suspect]
     Route: 048

REACTIONS (11)
  - Upper limb fracture [Unknown]
  - Fall [Unknown]
  - Cataract [Unknown]
  - Cyst [Unknown]
  - Visual impairment [Unknown]
  - Vision blurred [Unknown]
  - Arthritis [Unknown]
  - Nerve compression [Unknown]
  - Blood pressure increased [Unknown]
  - Corneal disorder [Unknown]
  - Headache [Unknown]
